FAERS Safety Report 7232062-0 (Version None)
Quarter: 2011Q1

REPORT INFORMATION
  Report Type: 
  Country: None (occurrence: None)
  Receive Date: 20110118
  Receipt Date: 20110114
  Transmission Date: 20110831
  Serious: Yes (Hospitalization)
  Sender: FDA-Public Use
  Company Number: US-BRISTOL-MYERS SQUIBB COMPANY-15465461

PATIENT
  Age: 53 Year
  Sex: Female
  Weight: 60 kg

DRUGS (16)
  1. VITAMIN B6 [Concomitant]
  2. LIPITOR [Concomitant]
  3. ATIVAN [Concomitant]
     Indication: NAUSEA
     Route: 048
     Dates: start: 20100209
  4. PERCOCET [Concomitant]
     Indication: PAIN
     Dosage: 1 DF=5-325 MG
     Route: 048
     Dates: start: 20100209
  5. DIOVAN [Concomitant]
  6. FISH OIL [Concomitant]
  7. IXABEPILONE [Suspect]
     Indication: BREAST CANCER METASTATIC
     Dosage: DAY 1 ,8,LAST DOSE ON 28DEC2010
     Route: 042
     Dates: start: 20100215, end: 20101228
  8. CARBOPLATIN [Suspect]
     Indication: BREAST CANCER METASTATIC
     Dosage: DAY 1,8.LAST DOSE ON 28DEC2010.
     Route: 042
     Dates: start: 20100215, end: 20101228
  9. DIPHENHYDRAMINE [Concomitant]
     Indication: PREMEDICATION
     Route: 042
     Dates: start: 20100309
  10. COMPAZINE [Concomitant]
     Indication: NAUSEA
     Route: 048
     Dates: start: 20100209
  11. FAMOTIDINE [Concomitant]
     Indication: PREMEDICATION
     Route: 042
     Dates: start: 20100309
  12. ALPHA-LIPOIC ACID [Concomitant]
  13. ATIVAN [Concomitant]
     Indication: ANXIETY
     Route: 048
     Dates: start: 20100209
  14. CALCIUM + VITAMIN D [Concomitant]
  15. GLUTAMINE [Concomitant]
  16. SENOKOT [Concomitant]

REACTIONS (3)
  - OXYGEN SATURATION DECREASED [None]
  - PYREXIA [None]
  - CHILLS [None]
